FAERS Safety Report 10188515 (Version 1)
Quarter: 2014Q2

REPORT INFORMATION
  Report Type: Spontaneous
  Country: US (occurrence: US)
  Receive Date: 20140522
  Receipt Date: 20140522
  Transmission Date: 20141212
  Serious: No
  Sender: FDA-Public Use
  Company Number: US-SA-2014SA031916

PATIENT
  Age: 70 Year
  Sex: Male

DRUGS (3)
  1. LANTUS SOLOSTAR [Suspect]
     Indication: TYPE 2 DIABETES MELLITUS
     Dosage: LANTUS SOLOSTAR STARTED 3 TO 4 YEARS AGO; 60 U AT NIGHT DOSE:60 UNIT(S)
     Route: 065
  2. HUMALOG [Concomitant]
     Dosage: DOSE:15 UNIT(S)
  3. METFORMIN [Concomitant]

REACTIONS (2)
  - Herpes zoster [Not Recovered/Not Resolved]
  - Burning sensation [Not Recovered/Not Resolved]
